FAERS Safety Report 4871388-2 (Version None)
Quarter: 2005Q4

REPORT INFORMATION
  Report Type: 
  Country: None (occurrence: None)
  Receive Date: 20051229
  Receipt Date: 20051221
  Transmission Date: 20060501
  Serious: Yes (Hospitalization, Other)
  Sender: FDA-Public Use
  Company Number: 200512777BWH

PATIENT
  Age: 89 Year
  Sex: Female

DRUGS (4)
  1. AVELOX [Suspect]
     Indication: BRONCHITIS ACUTE
     Dosage: ORAL
     Route: 048
  2. COUMADIN [Suspect]
     Indication: ATRIAL FIBRILLATION
  3. LASIX [Suspect]
     Indication: CARDIAC FAILURE CHRONIC
  4. DIGOXIN [Suspect]
     Indication: ATRIAL FIBRILLATION

REACTIONS (2)
  - JAUNDICE [None]
  - PANCREATITIS [None]
